FAERS Safety Report 11227694 (Version 1)
Quarter: 2015Q2

REPORT INFORMATION
  Report Type: Report from Study
  Country: FR (occurrence: NE)
  Receive Date: 20150630
  Receipt Date: 20150630
  Transmission Date: 20150821
  Serious: Yes (Death, Other)
  Sender: FDA-Public Use
  Company Number: FR-ROCHE-1245966

PATIENT

DRUGS (1)
  1. CEFTRIAXONE. [Suspect]
     Active Substance: CEFTRIAXONE
     Indication: MENINGITIS MENINGOCOCCAL
     Dosage: MAXIMUM OF 4 G, ONE DOSE
     Route: 030

REACTIONS (2)
  - Treatment failure [Unknown]
  - Death [Fatal]
